FAERS Safety Report 18446039 (Version 1)
Quarter: 2020Q4

REPORT INFORMATION
  Report Type: Report from Study
  Country: JP (occurrence: JP)
  Receive Date: 20201030
  Receipt Date: 20201030
  Transmission Date: 20210114
  Serious: Yes (Hospitalization, Other)
  Sender: FDA-Public Use
  Company Number: JP-JNJFOC-20181225544

PATIENT
  Age: 39 Year
  Sex: Male

DRUGS (42)
  1. EPZICOM [Suspect]
     Active Substance: ABACAVIR SULFATE\LAMIVUDINE
     Indication: HIV INFECTION
     Route: 048
     Dates: start: 20091211, end: 20100920
  2. TRUVADA [Suspect]
     Active Substance: EMTRICITABINE\TENOFOVIR DISOPROXIL FUMARATE
     Indication: HIV INFECTION
     Route: 048
     Dates: start: 20091022, end: 20091202
  3. TIVICAY [Suspect]
     Active Substance: DOLUTEGRAVIR SODIUM
     Indication: HIV INFECTION
     Route: 048
     Dates: start: 20150709, end: 20190220
  4. VALIXA [Concomitant]
     Active Substance: VALGANCICLOVIR
     Indication: CYTOMEGALOVIRUS INFECTION
     Route: 048
     Dates: start: 20100106, end: 20100127
  5. VALIXA [Concomitant]
     Active Substance: VALGANCICLOVIR
     Indication: CYTOMEGALOVIRUS CHORIORETINITIS
     Route: 048
     Dates: start: 20100519, end: 20100630
  6. PYDOXAL [Concomitant]
     Active Substance: PYRIDOXAL
     Indication: ACNE
     Route: 065
     Dates: start: 20130401, end: 20140708
  7. ISENTRESS [Concomitant]
     Active Substance: RALTEGRAVIR POTASSIUM
     Indication: HIV INFECTION
     Route: 048
     Dates: start: 20100921, end: 20150708
  8. CRAVIT [Concomitant]
     Active Substance: LEVOFLOXACIN
     Indication: PYELONEPHRITIS
     Route: 048
     Dates: start: 20130731, end: 20130811
  9. MASKIN [Concomitant]
     Indication: SKIN PAPILLOMA
     Dosage: Q.S.
     Route: 065
     Dates: start: 20101214, end: 20111019
  10. HIBON [Concomitant]
     Active Substance: RIBOFLAVIN
     Indication: ACNE
     Route: 048
     Dates: start: 20130401, end: 20140708
  11. MIRTAZAPINE. [Concomitant]
     Active Substance: MIRTAZAPINE
     Indication: DEPRESSION
     Route: 048
     Dates: start: 20140126, end: 20150623
  12. MIRTAZAPINE. [Concomitant]
     Active Substance: MIRTAZAPINE
     Route: 048
     Dates: start: 20150624
  13. DOLUTEGRAVIR SODIUM [Concomitant]
     Active Substance: DOLUTEGRAVIR SODIUM
     Indication: HIV INFECTION
     Route: 048
     Dates: start: 20190221
  14. REYATAZ [Suspect]
     Active Substance: ATAZANAVIR SULFATE
     Indication: HIV INFECTION
     Route: 048
     Dates: start: 20091022, end: 20091202
  15. NORVIR [Concomitant]
     Active Substance: RITONAVIR
     Indication: HIV INFECTION
     Route: 048
     Dates: start: 20110616, end: 20150708
  16. VALIXA [Concomitant]
     Active Substance: VALGANCICLOVIR
     Indication: MYCOBACTERIUM AVIUM COMPLEX INFECTION
     Route: 048
     Dates: start: 20100216, end: 20100324
  17. GANCICLOVIR. [Concomitant]
     Active Substance: GANCICLOVIR
     Indication: CYTOMEGALOVIRUS CHORIORETINITIS
     Route: 042
     Dates: start: 20100129, end: 20100215
  18. BENAMBAX [Concomitant]
     Active Substance: PENTAMIDINE
     Indication: ANTIFUNGAL PROPHYLAXIS
     Route: 055
     Dates: start: 20101012, end: 20110616
  19. RILPIVIRINE HYDROCHLORIDE [Concomitant]
     Active Substance: RILPIVIRINE HYDROCHLORIDE
     Indication: HIV INFECTION
     Route: 048
  20. PREZISTANAIVE [Suspect]
     Active Substance: DARUNAVIR
     Indication: HIV INFECTION
     Route: 048
     Dates: start: 20091203, end: 20150708
  21. METHYCOBAL [Concomitant]
     Active Substance: METHYLCOBALAMIN
     Indication: HYPOAESTHESIA
     Route: 065
     Dates: start: 20101214, end: 20111220
  22. NASONEX [Concomitant]
     Active Substance: MOMETASONE FUROATE
     Indication: RHINITIS PERENNIAL
     Dosage: 2 TIMES SPRAY PER DAY
     Route: 045
     Dates: start: 20110714
  23. MYSLEE [Concomitant]
     Active Substance: ZOLPIDEM TARTRATE
     Indication: DEPRESSION
     Dosage: P.R.N
     Route: 048
     Dates: start: 20150401, end: 20180331
  24. MICARDIS [Concomitant]
     Active Substance: TELMISARTAN
     Indication: HYPERTENSION
     Route: 048
     Dates: start: 20160706
  25. RINGER^S SOLUTION                  /03353501/ [Concomitant]
     Indication: HEPATITIS A
     Dosage: UNKNOWN
     Route: 065
     Dates: start: 20180326, end: 20180330
  26. ETHAMBUTOL HYDROCHLORIDE. [Concomitant]
     Active Substance: ETHAMBUTOL HYDROCHLORIDE
     Indication: DISSEMINATED MYCOBACTERIUM AVIUM COMPLEX INFECTION
     Route: 048
     Dates: start: 20091120, end: 20100427
  27. CLARITH [Concomitant]
     Active Substance: CLARITHROMYCIN
     Indication: DISSEMINATED MYCOBACTERIUM AVIUM COMPLEX INFECTION
     Route: 048
     Dates: start: 20091120, end: 20110314
  28. DALACIN T [Concomitant]
     Active Substance: CLINDAMYCIN PHOSPHATE
     Indication: ACNE
     Dosage: Q.S.
     Route: 061
     Dates: start: 20101214, end: 20140708
  29. EDURANT [Suspect]
     Active Substance: RILPIVIRINE HYDROCHLORIDE
     Indication: HIV INFECTION
     Route: 048
     Dates: start: 20150709, end: 20190220
  30. RISPERDAL [Concomitant]
     Active Substance: RISPERIDONE
     Indication: DEPRESSION
     Dosage: P.R.N
     Route: 048
     Dates: start: 20140501, end: 20160818
  31. MYCOBUTIN [Concomitant]
     Active Substance: RIFABUTIN
     Indication: MYCOBACTERIUM AVIUM COMPLEX INFECTION
     Route: 048
     Dates: start: 20091120, end: 20091211
  32. ALESION [Concomitant]
     Active Substance: EPINASTINE HYDROCHLORIDE
     Indication: RHINITIS PERENNIAL
     Route: 065
     Dates: start: 20110714
  33. LOXOPROFEN [Concomitant]
     Active Substance: LOXOPROFEN
     Dosage: UNKNOWN
     Route: 048
     Dates: start: 20180326, end: 20180402
  34. INTELENCE [Suspect]
     Active Substance: ETRAVIRINE
     Indication: HIV INFECTION
     Route: 048
     Dates: start: 20100921, end: 20110714
  35. NORVIR [Suspect]
     Active Substance: RITONAVIR
     Indication: HIV INFECTION
     Route: 048
     Dates: start: 20091022, end: 20110615
  36. VALIXA [Concomitant]
     Active Substance: VALGANCICLOVIR
     Indication: CYTOMEGALOVIRUS CHORIORETINITIS
     Route: 048
     Dates: start: 20100701, end: 20110120
  37. CRAVIT [Concomitant]
     Active Substance: LEVOFLOXACIN
     Indication: DISSEMINATED MYCOBACTERIUM AVIUM COMPLEX INFECTION
     Route: 065
     Dates: start: 20091120, end: 20091215
  38. COIX SEED EXTRACT                  /01647802/ [Concomitant]
     Indication: SKIN PAPILLOMA
     Route: 048
     Dates: start: 20101214, end: 20140708
  39. LYRICA [Concomitant]
     Active Substance: PREGABALIN
     Indication: HYPOAESTHESIA
     Route: 048
     Dates: start: 20111221
  40. MIRTAZAPINE. [Concomitant]
     Active Substance: MIRTAZAPINE
     Dosage: UNKNOWN
     Route: 048
     Dates: start: 20170401
  41. ELIETEN [Concomitant]
     Active Substance: METOCLOPRAMIDE
     Dosage: UNKNOWN
     Route: 065
     Dates: start: 20180326, end: 20180402
  42. CALONAL [Concomitant]
     Active Substance: ACETAMINOPHEN
     Indication: HEPATITIS A
     Dosage: UNKNOWN
     Route: 065
     Dates: start: 20180321, end: 20180326

REACTIONS (10)
  - Cytomegalovirus chorioretinitis [Recovering/Resolving]
  - Blood creatinine increased [Not Recovered/Not Resolved]
  - Hypoaesthesia [Recovering/Resolving]
  - Retinal detachment [Recovering/Resolving]
  - Hepatitis A [Recovered/Resolved]
  - Pyelonephritis [Recovered/Resolved]
  - Vitreous floaters [Recovered/Resolved]
  - Depression [Recovering/Resolving]
  - Hypertension [Recovering/Resolving]
  - Rhinitis perennial [Recovering/Resolving]

NARRATIVE: CASE EVENT DATE: 2009
